FAERS Safety Report 14602161 (Version 3)
Quarter: 2018Q2

REPORT INFORMATION
  Report Type: Spontaneous
  Country: JP (occurrence: JP)
  Receive Date: 20180306
  Receipt Date: 20180403
  Transmission Date: 20180711
  Serious: Yes (Death)
  Sender: FDA-Public Use
  Company Number: JP-ORPHAN EUROPE-2043018

PATIENT
  Age: 24 Month
  Sex: Female
  Weight: 12.98 kg

DRUGS (8)
  1. RAPIACTA [Concomitant]
     Active Substance: PERAMIVIR
     Dates: start: 20180219, end: 20180228
  2. CARBAGLU [Suspect]
     Active Substance: CARGLUMIC ACID
     Indication: METHYLMALONIC ACIDURIA
     Route: 050
     Dates: start: 20180223, end: 20180225
  3. METHYLCOBAL [Concomitant]
     Active Substance: METHYLCOBALAMIN
  4. ARGININE [Concomitant]
     Active Substance: ARGININE
     Dates: start: 20180219, end: 20180228
  5. L-CARNITIN [Concomitant]
     Dates: start: 20180219, end: 20180228
  6. PANVITAN [Concomitant]
  7. PRANLUKAST [Concomitant]
     Active Substance: PRANLUKAST
  8. CARBAGLU [Suspect]
     Active Substance: CARGLUMIC ACID
     Route: 050
     Dates: start: 20180226, end: 20180228

REACTIONS (2)
  - Condition aggravated [Fatal]
  - Multiple organ dysfunction syndrome [Fatal]

NARRATIVE: CASE EVENT DATE: 20180228
